FAERS Safety Report 22175874 (Version 1)
Quarter: 2023Q2

REPORT INFORMATION
  Report Type: Spontaneous
  Country: US (occurrence: None)
  Receive Date: 20230404
  Receipt Date: 20230404
  Transmission Date: 20230722
  Serious: No
  Sender: FDA-Public Use
  Company Number: None

PATIENT
  Age: 36 Year
  Sex: Female
  Weight: 75.6 kg

DRUGS (8)
  1. AJOVY [Suspect]
     Active Substance: FREMANEZUMAB-VFRM
     Indication: Migraine
     Dosage: FREQUENCY : MONTHLY;?
     Route: 058
     Dates: start: 20230216
  2. Fludrocourtisine [Concomitant]
  3. MIDODRINE [Concomitant]
     Active Substance: MIDODRINE
  4. CYMBALTA [Concomitant]
     Active Substance: DULOXETINE HYDROCHLORIDE
  5. METHADONE [Concomitant]
     Active Substance: METHADONE HYDROCHLORIDE
  6. MAXALT [Concomitant]
     Active Substance: RIZATRIPTAN BENZOATE
  7. DEPO-PROVERA [Concomitant]
     Active Substance: MEDROXYPROGESTERONE ACETATE
  8. DRONABINOL [Concomitant]
     Active Substance: DRONABINOL

REACTIONS (2)
  - Breast tenderness [None]
  - Breast discomfort [None]

NARRATIVE: CASE EVENT DATE: 20230316
